FAERS Safety Report 20430094 (Version 1)
Quarter: 2022Q1

REPORT INFORMATION
  Report Type: Report from Study
  Country: US (occurrence: US)
  Receive Date: 20220204
  Receipt Date: 20220204
  Transmission Date: 20220423
  Serious: Yes (Life-Threatening, Hospitalization)
  Sender: FDA-Public Use
  Company Number: US-SERVIER-S20002354

PATIENT

DRUGS (8)
  1. ONCASPAR [Suspect]
     Active Substance: PEGASPARGASE
     Indication: Acute lymphocytic leukaemia
     Dosage: UNK
     Route: 042
     Dates: end: 20191231
  2. VINCRISTINE [Suspect]
     Active Substance: VINCRISTINE
     Indication: Acute lymphocytic leukaemia
     Dosage: 2 MG/M2, EVERY 3 WEEKS
     Route: 042
     Dates: start: 20190129, end: 20200218
  3. DEXAMETHASONE [Suspect]
     Active Substance: DEXAMETHASONE
     Indication: Acute lymphocytic leukaemia
     Dosage: 6 MG/M2 DAYS 1-5 OF EACH 3-WEEK CYCLE
     Route: 048
     Dates: start: 20190126, end: 20200222
  4. MERCAPTOPURINE [Suspect]
     Active Substance: MERCAPTOPURINE
     Indication: Acute lymphocytic leukaemia
     Dosage: 50 MG/M2 DAYS 1-14 OF EACH 3-WEEK CYCLE
     Route: 048
     Dates: start: 20190216, end: 20200302
  5. METHOTREXATE [Suspect]
     Active Substance: METHOTREXATE
     Indication: Acute lymphocytic leukaemia
     Dosage: 30 MG/M2, EVERY 1 WEEK
     Route: 042
     Dates: start: 20200218, end: 20200225
  6. METHOTREXATE [Suspect]
     Active Substance: METHOTREXATE
     Dosage: 12 MG EVERY 9 WEEKS FOR 6 WEEKS POST-CNS PHASE, THEN EVERY 18 WEEKS UNTIL COMPLETION OF THERAPY
     Route: 037
     Dates: start: 20190129, end: 20200107
  7. CYTARABINE [Suspect]
     Active Substance: CYTARABINE
     Indication: Acute lymphocytic leukaemia
     Dosage: 40 MG, EVERY 9 WEEKS FOR 6 WEEKS POST-CNS PHASE, THEN EVERY 18 WEEKS UNTIL COMPLETION OF THERAPY
     Route: 037
     Dates: start: 20190125, end: 20200107
  8. HYDROCORTISONE [Suspect]
     Active Substance: HYDROCORTISONE
     Indication: Acute lymphocytic leukaemia
     Dosage: 15 MG, EVERY 9 WEEKS FOR 6 WEEKS POST-CNS PHASE, THEN EVERY 18 WEEKS UNTIL COMPLETION OF THERAPY
     Route: 037
     Dates: start: 20190129, end: 20200107

REACTIONS (1)
  - Pneumonia [Recovered/Resolved]

NARRATIVE: CASE EVENT DATE: 20200302
